FAERS Safety Report 12784193 (Version 3)
Quarter: 2020Q2

REPORT INFORMATION
  Report Type: Spontaneous
  Country: US (occurrence: US)
  Receive Date: 20160927
  Receipt Date: 20200508
  Transmission Date: 20200713
  Serious: No
  Sender: FDA-Public Use
  Company Number: US-PFIZER INC-2016449981

PATIENT
  Age: 82 Year
  Sex: Female

DRUGS (11)
  1. ABILIFY [Concomitant]
     Active Substance: ARIPIPRAZOLE
     Dosage: UNK
  2. WELLBUTRIN [Concomitant]
     Active Substance: BUPROPION HYDROCHLORIDE
     Dosage: UNK
  3. ALEVE [Concomitant]
     Active Substance: NAPROXEN SODIUM
     Dosage: UNK
  4. ATENOLOL. [Concomitant]
     Active Substance: ATENOLOL
     Dosage: UNK
  5. TYLENOL [Concomitant]
     Active Substance: ACETAMINOPHEN
     Dosage: UNK
  6. QUINAPRIL. [Concomitant]
     Active Substance: QUINAPRIL
     Dosage: UNK
  7. SYNTHROID [Concomitant]
     Active Substance: LEVOTHYROXINE SODIUM
     Dosage: UNK
  8. PROBIOTIC [BIFIDOBACTERIUM LACTIS] [Concomitant]
     Active Substance: BIFIDOBACTERIUM ANIMALIS LACTIS
     Dosage: UNK
  9. DULOXETINE. [Concomitant]
     Active Substance: DULOXETINE
     Dosage: UNK
  10. XELJANZ [Suspect]
     Active Substance: TOFACITINIB CITRATE
     Indication: RHEUMATOID ARTHRITIS
     Dosage: 5 MG, DAILY
     Route: 048
     Dates: start: 2016, end: 202002
  11. ATORVASTATIN [Concomitant]
     Active Substance: ATORVASTATIN
     Dosage: UNK

REACTIONS (6)
  - Lactose intolerance [Not Recovered/Not Resolved]
  - Alopecia [Unknown]
  - Abdominal discomfort [Unknown]
  - Pain in extremity [Unknown]
  - Diarrhoea [Not Recovered/Not Resolved]
  - Osteopenia [Unknown]
